FAERS Safety Report 19477772 (Version 1)
Quarter: 2021Q2

REPORT INFORMATION
  Report Type: Spontaneous
  Country: US (occurrence: US)
  Receive Date: 20210630
  Receipt Date: 20210630
  Transmission Date: 20210717
  Serious: No
  Sender: FDA-Public Use
  Company Number: US-KRAMERLABS-2021-US-002395

PATIENT
  Sex: Male

DRUGS (1)
  1. NIZORAL A?D [Suspect]
     Active Substance: KETOCONAZOLE
     Indication: DRY SKIN
     Dosage: USED TWICE A WEEK, THEN INCREASED TO EVERY OTHER DAY, THEN INCREASED TO DAILY USE FOR THE LAST 3 DAY
     Route: 061
     Dates: start: 202012

REACTIONS (6)
  - Skin discolouration [Not Recovered/Not Resolved]
  - Intentional product misuse [Unknown]
  - Dry skin [Not Recovered/Not Resolved]
  - Product use in unapproved indication [Unknown]
  - Condition aggravated [Not Recovered/Not Resolved]
  - Pruritus [Not Recovered/Not Resolved]

NARRATIVE: CASE EVENT DATE: 202012
